FAERS Safety Report 17739877 (Version 1)
Quarter: 2020Q2

REPORT INFORMATION
  Report Type: Spontaneous
  Country: US (occurrence: US)
  Receive Date: 20200501
  Receipt Date: 20200501
  Transmission Date: 20200714
  Serious: No
  Sender: FDA-Public Use
  Company Number: None

PATIENT
  Sex: Male

DRUGS (8)
  1. METHOTREXATE. [Concomitant]
     Active Substance: METHOTREXATE
  2. ROSUVASTATIN. [Concomitant]
     Active Substance: ROSUVASTATIN
  3. ORENCIA [Concomitant]
     Active Substance: ABATACEPT
  4. ESBRIET [Suspect]
     Active Substance: PIRFENIDONE
     Indication: PULMONARY FIBROSIS
     Dosage: ?          OTHER DOSE:STARTER DOSE;?
     Route: 048
     Dates: start: 20200422
  5. LOSARTAN POT [Suspect]
     Active Substance: LOSARTAN POTASSIUM
  6. PREDNISONE. [Concomitant]
     Active Substance: PREDNISONE
  7. FOLIC ACID. [Concomitant]
     Active Substance: FOLIC ACID
  8. METHYLPRED [Concomitant]
     Active Substance: METHYLPREDNISOLONE

REACTIONS (1)
  - Pneumonia [None]
